FAERS Safety Report 5517975-X (Version None)
Quarter: 2007Q4

REPORT INFORMATION
  Report Type: 
  Country: None (occurrence: None)
  Receive Date: 20071114
  Receipt Date: 20071114
  Transmission Date: 20080405
  Serious: Yes (Hospitalization, Disabling, Other)
  Sender: FDA-Public Use
  Company Number: None

PATIENT
  Age: 33 Year
  Sex: Female
  Weight: 61.2356 kg

DRUGS (2)
  1. PREDNISONE TAB [Suspect]
     Indication: BRONCHITIS
     Dosage: 10MG TABS PACK 48'S PO
     Route: 048
     Dates: start: 20060205, end: 20060212
  2. PREDNISONE TAB [Suspect]
     Indication: BRONCHITIS
     Dosage: 5MG TABLETS PACK PO
     Route: 048
     Dates: start: 20060305, end: 20060312

REACTIONS (6)
  - ACTIVITIES OF DAILY LIVING IMPAIRED [None]
  - ARTHRALGIA [None]
  - IMPAIRED WORK ABILITY [None]
  - OSTEONECROSIS [None]
  - WALKING AID USER [None]
  - WHEELCHAIR USER [None]
